FAERS Safety Report 4845642-4 (Version None)
Quarter: 2005Q4

REPORT INFORMATION
  Report Type: 
  Country: None (occurrence: None)
  Receive Date: 20051205
  Receipt Date: 20051129
  Transmission Date: 20060501
  Serious: Yes (Other)
  Sender: FDA-Public Use
  Company Number: JP-MERCK-0511USA04301

PATIENT
  Age: 73 Year
  Sex: Female

DRUGS (8)
  1. PEPCID RPD [Suspect]
     Route: 048
     Dates: start: 20050818
  2. ACTONEL [Concomitant]
     Route: 048
     Dates: start: 20050818
  3. BEZATOL [Concomitant]
     Route: 048
     Dates: start: 20050818
  4. GLAKAY [Concomitant]
     Route: 048
     Dates: start: 20050818
  5. GANATON [Concomitant]
     Route: 048
     Dates: start: 20050818
  6. MAGNESIUM OXIDE [Concomitant]
     Route: 048
     Dates: start: 20050818
  7. NOVOLIN R [Concomitant]
     Route: 058
     Dates: start: 20050818
  8. INSULIN [Concomitant]
     Route: 058
     Dates: start: 20050818

REACTIONS (6)
  - ALANINE AMINOTRANSFERASE INCREASED [None]
  - ASPARTATE AMINOTRANSFERASE INCREASED [None]
  - BLOOD ALKALINE PHOSPHATASE INCREASED [None]
  - BLOOD CHOLINESTERASE INCREASED [None]
  - GAMMA-GLUTAMYLTRANSFERASE INCREASED [None]
  - HEPATIC FUNCTION ABNORMAL [None]
